FAERS Safety Report 5740693-X (Version None)
Quarter: 2008Q2

REPORT INFORMATION
  Report Type: 
  Country: None (occurrence: None)
  Receive Date: 20080516
  Receipt Date: 20080508
  Transmission Date: 20081010
  Serious: Yes (Hospitalization, Other)
  Sender: FDA-Public Use
  Company Number: US-AMGEN-QUU274500

PATIENT
  Sex: Female
  Weight: 68.1 kg

DRUGS (15)
  1. ENBREL [Suspect]
     Indication: RHEUMATOID ARTHRITIS
     Route: 058
     Dates: start: 20030730
  2. ZYPREXA [Suspect]
     Dates: start: 20030801
  3. FELDENE [Concomitant]
     Dates: start: 20020213
  4. DARVOCET-N [Concomitant]
  5. ZOMIG [Concomitant]
  6. METHOTREXATE [Concomitant]
     Route: 058
     Dates: start: 20000101
  7. ADALIMUMAB [Concomitant]
     Route: 058
     Dates: start: 20020213
  8. LEUCOVORIN CALCIUM [Concomitant]
     Dates: start: 20020213
  9. COMPAZINE [Concomitant]
  10. DEPO-PROVERA [Concomitant]
     Dates: start: 20020731
  11. IRON [Concomitant]
     Dates: start: 20020731
  12. AMBIEN [Concomitant]
     Dates: start: 20030730
  13. ARAVA [Concomitant]
  14. LEXAPRO [Concomitant]
     Dates: start: 20040204
  15. PROZAC [Concomitant]
     Dates: start: 20050406

REACTIONS (14)
  - ANXIETY DISORDER [None]
  - ARRHYTHMIA [None]
  - ARTHRALGIA [None]
  - CONVULSION [None]
  - DEPRESSION [None]
  - HEADACHE [None]
  - MUSCULOSKELETAL STIFFNESS [None]
  - OSTEOARTHRITIS [None]
  - PARAESTHESIA ORAL [None]
  - PRESYNCOPE [None]
  - SLEEP DISORDER [None]
  - SPINAL COMPRESSION FRACTURE [None]
  - URINARY TRACT INFECTION [None]
  - VISUAL DISTURBANCE [None]
